FAERS Safety Report 9267618 (Version 2)
Quarter: 2014Q1

REPORT INFORMATION
  Report Type: Report from Study
  Country: US (occurrence: US)
  Receive Date: 20130502
  Receipt Date: 20140226
  Transmission Date: 20141002
  Serious: Yes (Hospitalization, Other)
  Sender: FDA-Public Use
  Company Number: US-ALEXION-A201200716

PATIENT
  Age: 41 Year
  Sex: Male
  Weight: 90.7 kg

DRUGS (4)
  1. SOLIRIS [Suspect]
     Indication: PAROXYSMAL NOCTURNAL HAEMOGLOBINURIA
     Dosage: 900 MG, Q2W
     Route: 042
     Dates: start: 20110821
  2. LEVOTHYROXINE [Concomitant]
     Indication: THYROID DISORDER
     Dosage: 0.2 MG, UNK
  3. LEVOTHYROXINE [Concomitant]
     Dosage: 0.5 MG MG, UNK
  4. FOLIC ACID [Concomitant]
     Dosage: UNK

REACTIONS (12)
  - Infectious mononucleosis [Recovering/Resolving]
  - Haemoglobin decreased [Unknown]
  - Pyrexia [Recovered/Resolved]
  - Disturbance in attention [Unknown]
  - Night sweats [Recovered/Resolved]
  - Weight decreased [Not Recovered/Not Resolved]
  - Fatigue [Not Recovered/Not Resolved]
  - Abdominal pain [Recovered/Resolved]
  - Diarrhoea [Recovered/Resolved]
  - Decreased appetite [Recovered/Resolved]
  - Headache [Unknown]
  - Asthenia [Unknown]
